FAERS Safety Report 13532035 (Version 1)
Quarter: 2017Q2

REPORT INFORMATION
  Report Type: Spontaneous
  Country: US (occurrence: US)
  Receive Date: 20170510
  Receipt Date: 20170510
  Transmission Date: 20170830
  Serious: Yes (Hospitalization)
  Sender: FDA-Public Use
  Company Number: US-MISSION PHARMACAL COMPANY-2020512

PATIENT
  Age: 69 Year
  Sex: Male

DRUGS (1)
  1. THIOLA [Suspect]
     Active Substance: TIOPRONIN
     Indication: NEPHROLITHIASIS
     Route: 065
     Dates: start: 20141004

REACTIONS (7)
  - Thrombosis [None]
  - Asthenia [Unknown]
  - Pulmonary thrombosis [Unknown]
  - Drug dose omission [Unknown]
  - Ulcer haemorrhage [None]
  - Fall [None]
  - Pulmonary fibrosis [Unknown]
